FAERS Safety Report 8009121-8 (Version None)
Quarter: 2011Q4

REPORT INFORMATION
  Report Type: 
  Country: None (occurrence: None)
  Receive Date: 20111227
  Receipt Date: 20111219
  Transmission Date: 20120403
  Serious: Yes (Hospitalization, Other)
  Sender: FDA-Public Use
  Company Number: US-ASTRAZENECA-2011SE49550

PATIENT
  Age: 72 Year
  Sex: Female

DRUGS (37)
  1. SEROQUEL [Suspect]
     Route: 048
  2. LIMBREL [Concomitant]
     Indication: ARTHRITIS
     Route: 048
  3. LOVAZA [Concomitant]
     Indication: HYPERCHOLESTEROLAEMIA
  4. HUMULIN R [Concomitant]
     Indication: DIABETES MELLITUS
     Dosage: 70/30 25UNITS IN MORNING AND 15 UNITS AT NIGHT
  5. SEROQUEL [Suspect]
     Route: 048
  6. COLCRYS [Concomitant]
     Indication: ARTHRITIS
  7. PRILOSEC OTC [Concomitant]
     Indication: GASTROOESOPHAGEAL REFLUX DISEASE
  8. VITAMIN C [Concomitant]
     Indication: NEUROPATHY PERIPHERAL
  9. TART CHERRY [Concomitant]
     Indication: ARTHRALGIA
     Dosage: BID
  10. SEROQUEL [Suspect]
     Indication: INSOMNIA
     Route: 048
     Dates: start: 20000101
  11. SEROQUEL [Suspect]
     Route: 048
  12. LISINOPRIL AND HYDROCHLOROTHIAZIDE [Concomitant]
  13. POTASSIUM CHLORIDE [Concomitant]
     Indication: HYPOKALAEMIA
  14. VITAMIN E [Concomitant]
     Indication: CARDIAC DISORDER
  15. SEROQUEL [Suspect]
     Route: 048
  16. LACTULOSE [Concomitant]
     Indication: LIVER DISORDER
  17. LEVOTHYROXINE SODIUM [Concomitant]
     Indication: THYROID DISORDER
  18. FOLATE ACID [Concomitant]
     Indication: NEUROPATHY PERIPHERAL
  19. TRAMADOL HCL [Concomitant]
     Indication: PAIN
     Dosage: AS REQUIRED
  20. LISINOPRIL [Concomitant]
     Indication: HYPERTENSION
  21. SEROQUEL [Suspect]
     Route: 048
  22. ALLOPURINOL [Concomitant]
     Indication: ARTHRITIS
  23. DOXEPIN [Concomitant]
     Indication: ANTIDEPRESSANT THERAPY
  24. GABAPENTIN [Concomitant]
     Indication: NERVE INJURY
  25. CLONAPINE [Concomitant]
     Indication: FEELING OF RELAXATION
  26. LOPID [Concomitant]
     Indication: HYPERCHOLESTEROLAEMIA
  27. COQ10 [Concomitant]
     Indication: CARDIAC DISORDER
  28. INSULIN [Concomitant]
  29. SEROQUEL [Suspect]
     Indication: NEUROTRANSMITTER LEVEL ALTERED
     Route: 048
     Dates: start: 20000101
  30. SEROQUEL [Suspect]
     Route: 048
  31. LOVAZA [Concomitant]
     Indication: HYPERTRIGLYCERIDAEMIA
  32. ASPIRIN [Concomitant]
     Indication: CARDIAC DISORDER
  33. SEROQUEL [Suspect]
     Indication: BIPOLAR DISORDER
     Route: 048
     Dates: start: 20000101
  34. CLONAPINE [Concomitant]
     Indication: SLEEP DISORDER
  35. ALLEGRA [Concomitant]
     Indication: SEASONAL ALLERGY
     Dosage: TAKES EVERY 3 MONTHS OR WHEN HAS ALLERGIES
  36. VITAMIN E [Concomitant]
     Indication: MEMORY IMPAIRMENT
  37. VITAMIN D [Concomitant]
     Indication: NEUROPATHY PERIPHERAL

REACTIONS (22)
  - OSTEOARTHRITIS [None]
  - ADVERSE DRUG REACTION [None]
  - MALAISE [None]
  - WRONG TECHNIQUE IN DRUG USAGE PROCESS [None]
  - THYROID DISORDER [None]
  - HYPERTENSION [None]
  - INSOMNIA [None]
  - HEPATIC FAILURE [None]
  - NEOPLASM MALIGNANT [None]
  - GOUT [None]
  - CARDIAC MURMUR [None]
  - PSYCHOMOTOR HYPERACTIVITY [None]
  - DRUG PRESCRIBING ERROR [None]
  - SOMNOLENCE [None]
  - OFF LABEL USE [None]
  - RENAL FAILURE CHRONIC [None]
  - BLOOD CHOLESTEROL INCREASED [None]
  - FATIGUE [None]
  - ENDOMETRIAL CANCER [None]
  - OVARIAN CANCER [None]
  - NEUROPATHY PERIPHERAL [None]
  - DIABETES MELLITUS [None]
